FAERS Safety Report 22271509 (Version 1)
Quarter: 2023Q2

REPORT INFORMATION
  Report Type: Spontaneous
  Country: US (occurrence: US)
  Receive Date: 20230501
  Receipt Date: 20230501
  Transmission Date: 20230722
  Serious: Yes (Hospitalization)
  Sender: FDA-Public Use
  Company Number: US-BoehringerIngelheim-2023-BI-234783

PATIENT
  Age: 66 Year
  Sex: Female

DRUGS (2)
  1. COMBIVENT RESPIMAT [Suspect]
     Active Substance: ALBUTEROL SULFATE\IPRATROPIUM BROMIDE
     Indication: Chronic obstructive pulmonary disease
     Dosage: I PUFF 2-3 TIMES A DAY
     Dates: start: 2019
  2. BUMEX [Suspect]
     Active Substance: BUMETANIDE
     Indication: Product used for unknown indication

REACTIONS (2)
  - Dyspnoea [Recovering/Resolving]
  - Hypersensitivity [Unknown]

NARRATIVE: CASE EVENT DATE: 20230426
